FAERS Safety Report 9308513 (Version 2)
Quarter: 2013Q2

REPORT INFORMATION
  Report Type: Spontaneous
  Country: DE (occurrence: DE)
  Receive Date: 20130524
  Receipt Date: 20130531
  Transmission Date: 20140414
  Serious: Yes (Hospitalization, Other)
  Sender: FDA-Public Use
  Company Number: DE-JNJFOC-20130513727

PATIENT
  Age: 57 Year
  Sex: Male

DRUGS (2)
  1. IBUPROFEN [Suspect]
     Indication: RENAL IMPAIRMENT
     Dosage: 600MG BS
     Route: 065
  2. IBUPROFEN [Suspect]
     Indication: ARTHRALGIA
     Dosage: 600MG BS
     Route: 065

REACTIONS (2)
  - Anuria [Recovering/Resolving]
  - Arrhythmia [Recovering/Resolving]
